FAERS Safety Report 5850746-3 (Version None)
Quarter: 2008Q3

REPORT INFORMATION
  Report Type: 
  Country: None (occurrence: None)
  Receive Date: 20080819
  Receipt Date: 20080819
  Transmission Date: 20090109
  Serious: Yes (Hospitalization)
  Sender: FDA-Public Use
  Company Number: None

PATIENT
  Age: 48 Year
  Sex: Female
  Weight: 78.0187 kg

DRUGS (2)
  1. PAROXETINE HCL [Suspect]
     Indication: ANXIETY
     Dosage: 10MG DAILY PO
     Route: 048
  2. PAROXETINE HCL [Suspect]
     Indication: DEPRESSION
     Dosage: 10MG DAILY PO
     Route: 048

REACTIONS (5)
  - BRADYPHRENIA [None]
  - DEPRESSION [None]
  - FATIGUE [None]
  - PANIC ATTACK [None]
  - SUICIDAL IDEATION [None]
